FAERS Safety Report 5831928-3 (Version None)
Quarter: 2008Q3

REPORT INFORMATION
  Report Type: 
  Country: None (occurrence: None)
  Receive Date: 20080804
  Receipt Date: 20080701
  Transmission Date: 20090109
  Serious: No
  Sender: FDA-Public Use
  Company Number: US-BAYER-200815191NA

PATIENT
  Age: 61 Year
  Sex: Female
  Weight: 88 kg

DRUGS (3)
  1. AVELOX [Suspect]
     Indication: SINUSITIS
     Dosage: TOTAL DAILY DOSE: 400 MG  UNIT DOSE: 400 MG
     Route: 048
  2. WELLBUTRIN [Interacting]
     Indication: DRUG USE FOR UNKNOWN INDICATION
     Dates: start: 20030101
  3. SYNTHROID [Concomitant]
     Route: 048

REACTIONS (2)
  - DIZZINESS [None]
  - FEELING ABNORMAL [None]
